FAERS Safety Report 9256824 (Version 1)
Quarter: 2013Q2

REPORT INFORMATION
  Report Type: Spontaneous
  Country: US (occurrence: None)
  Receive Date: 20130423
  Receipt Date: 20130423
  Transmission Date: 20140414
  Serious: Yes (Hospitalization)
  Sender: FDA-Public Use
  Company Number: 2013EXPUS00092

PATIENT
  Age: 33 Year
  Sex: Male

DRUGS (1)
  1. EXPAREL [Suspect]
     Indication: NERVE BLOCK
     Dosage: 20 CC

REACTIONS (2)
  - Neuromuscular block prolonged [None]
  - Off label use [None]
